FAERS Safety Report 5747295-X (Version None)
Quarter: 2008Q2

REPORT INFORMATION
  Report Type: 
  Country: None (occurrence: None)
  Receive Date: 20080523
  Receipt Date: 20080424
  Transmission Date: 20081010
  Serious: Yes (Hospitalization)
  Sender: FDA-Public Use
  Company Number: US-BRISTOL-MYERS SQUIBB COMPANY-14196661

PATIENT
  Age: 59 Year
  Sex: Male
  Weight: 98 kg

DRUGS (12)
  1. CETUXIMAB [Suspect]
     Indication: METASTATIC GASTRIC CANCER
     Route: 042
     Dates: start: 20080414, end: 20080421
  2. TAXOTERE [Suspect]
     Indication: GASTRIC CANCER
     Dosage: BATCH/ LOT #: D6C992 EXPIRATION DATE: APR2009
     Route: 042
     Dates: start: 20080414
  3. ELOXATIN [Suspect]
     Indication: METASTATIC GASTRIC CANCER
     Dosage: BATCH/ LOT #: 1116070A EXPIRATION DATE: NOV2009
     Route: 042
     Dates: start: 20080414
  4. ALLOPURINOL [Concomitant]
     Route: 048
  5. CYCLOBENZAPRINE HCL [Concomitant]
     Dosage: TAKEN AS 1 IN 8 ASREQUIRED
     Route: 048
  6. DEXAMETHASONE TAB [Concomitant]
     Route: 048
  7. LORAZEPAM [Concomitant]
     Dosage: NUMBER OF DOSAGES  1 IN 12 AS REQUIRED.
     Route: 048
  8. METOPROLOL TARTRATE [Concomitant]
     Route: 048
  9. OXYCODONE HCL [Concomitant]
     Route: 065
  10. PROCHLORPERAZINE [Concomitant]
     Route: 065
  11. TRANDOLAPRIL [Concomitant]
     Route: 065
  12. VERAPAMIL [Concomitant]
     Route: 065

REACTIONS (4)
  - CLOSTRIDIAL INFECTION [None]
  - DIARRHOEA [None]
  - FAILURE TO THRIVE [None]
  - HYPONATRAEMIA [None]
